FAERS Safety Report 9599337 (Version 1)
Quarter: 2013Q4

REPORT INFORMATION
  Report Type: Spontaneous
  Country: US (occurrence: US)
  Receive Date: 20131004
  Receipt Date: 20131004
  Transmission Date: 20140711
  Serious: No
  Sender: FDA-Public Use
  Company Number: US-AMGEN-USASP2013028379

PATIENT
  Age: 68 Year
  Sex: Female
  Weight: 58.96 kg

DRUGS (13)
  1. ENBREL [Suspect]
     Indication: PRODUCT USED FOR UNKNOWN INDICATION
     Dosage: 50 MG, QWK
     Route: 058
  2. MULTIVITAMINS, PLAIN [Concomitant]
     Dosage: UNK
  3. COD LIVER OIL [Concomitant]
     Dosage: UNK
  4. OSTEO BI-FLEX [Concomitant]
     Dosage: UNK
  5. CENTRUM                            /02217401/ [Concomitant]
     Dosage: UNK
  6. FISH OIL [Concomitant]
     Dosage: UNK
  7. GARLIC                             /01570501/ [Concomitant]
     Dosage: 3 MG, UNK
  8. VITAMIN D                          /00107901/ [Concomitant]
     Dosage: 50000 UNIT, UNK
  9. NIACIN [Concomitant]
     Dosage: 125 MG, UNK
  10. VITAMIN B 12 [Concomitant]
     Dosage: 500 MUG, UNK
  11. MAGNESIUM [Concomitant]
     Dosage: 300 MG, UNK
  12. SULFASALAZIN [Concomitant]
     Dosage: 500 MG, UNK
  13. CALCIUM [Concomitant]

REACTIONS (1)
  - Blood calcium increased [Unknown]
